FAERS Safety Report 9913668 (Version 1)
Quarter: 2014Q1

REPORT INFORMATION
  Report Type: Spontaneous
  Country: US (occurrence: None)
  Receive Date: 20140218
  Receipt Date: 20140218
  Transmission Date: 20141002
  Serious: Yes (Other)
  Sender: FDA-Public Use
  Company Number: None

PATIENT
  Age: 34 Year
  Sex: Female
  Weight: 97.7 kg

DRUGS (1)
  1. HUMIRA PEN [Suspect]
     Indication: PSORIASIS
     Route: 058

REACTIONS (2)
  - Exposure during pregnancy [None]
  - Abortion spontaneous [None]
